FAERS Safety Report 23494464 (Version 1)
Quarter: 2024Q1

REPORT INFORMATION
  Report Type: Spontaneous
  Country: PL (occurrence: PL)
  Receive Date: 20240207
  Receipt Date: 20240207
  Transmission Date: 20240409
  Serious: Yes (Hospitalization, Other)
  Sender: FDA-Public Use
  Company Number: None

PATIENT
  Age: 90 Year
  Sex: Female

DRUGS (5)
  1. DOXEPIN [Suspect]
     Active Substance: DOXEPIN
     Indication: Personality disorder
     Dosage: 75 MILLIGRAM DAILY; 25 MILLIGRAM, TID
     Route: 065
  2. QUETIAPINE [Suspect]
     Active Substance: QUETIAPINE
     Indication: Hypertension
     Dosage: 75 MILLIGRAM DAILY, 25 MG, TID
     Route: 065
  3. AMLODIPINE [Concomitant]
     Active Substance: AMLODIPINE BESYLATE
     Indication: Hypertension
     Dosage: 5 MILLIGRAM, QD
     Route: 065
  4. PERINDOPRIL [Concomitant]
     Active Substance: PERINDOPRIL
     Indication: Hypertension
     Dosage: 5 MILLIGRAM DAILY; 1 ? 5 MG
     Route: 065
  5. PROMETHAZINE [Concomitant]
     Active Substance: PROMETHAZINE HYDROCHLORIDE
     Indication: Personality disorder
     Dosage: 50 MILLIGRAM DAILY, 25 MILLIGRAM, BID
     Route: 065

REACTIONS (7)
  - Cardiac failure [Recovering/Resolving]
  - Hyponatraemia [Unknown]
  - Arrhythmia [Unknown]
  - Creatinine renal clearance decreased [Unknown]
  - Anaemia [Unknown]
  - Bundle branch block left [Unknown]
  - Supraventricular extrasystoles [Unknown]

NARRATIVE: CASE EVENT DATE: 20220101
